FAERS Safety Report 12215756 (Version 1)
Quarter: 2016Q1

REPORT INFORMATION
  Report Type: Spontaneous
  Country: US (occurrence: US)
  Receive Date: 20160328
  Receipt Date: 20160328
  Transmission Date: 20160526
  Serious: No
  Sender: FDA-Public Use
  Company Number: US-BAYER-2016-049578

PATIENT
  Sex: Female
  Weight: 188 kg

DRUGS (28)
  1. DONEPEZIL. [Concomitant]
     Active Substance: DONEPEZIL
     Dosage: UNK
  2. TRAZODONE [Concomitant]
     Active Substance: TRAZODONE HYDROCHLORIDE
     Dosage: UNK
  3. MILK OF MAGNESIA [Concomitant]
     Active Substance: MAGNESIUM HYDROXIDE
     Dosage: UNK UNK, PRN
  4. BETASERON [Suspect]
     Active Substance: INTERFERON BETA-1B
     Indication: MULTIPLE SCLEROSIS
     Dosage: UNK
     Dates: start: 1991
  5. PROPRANOLOL [Concomitant]
     Active Substance: PROPRANOLOL\PROPRANOLOL HYDROCHLORIDE
     Dosage: UNK
  6. VENLAFAXINE [Concomitant]
     Active Substance: VENLAFAXINE HYDROCHLORIDE
     Dosage: UNK
  7. AMLODIPINE [Concomitant]
     Active Substance: AMLODIPINE BESYLATE
     Dosage: UNK
  8. RESTASIS [Concomitant]
     Active Substance: CYCLOSPORINE
     Dosage: UNK
  9. LAMOTRIGINE. [Concomitant]
     Active Substance: LAMOTRIGINE
     Dosage: UNK
  10. NUVIGIL [Concomitant]
     Active Substance: ARMODAFINIL
     Dosage: UNK
  11. BACLOFEN. [Concomitant]
     Active Substance: BACLOFEN
     Dosage: UNK
  12. LOTEMAX [Concomitant]
     Active Substance: LOTEPREDNOL ETABONATE
     Dosage: UNK
  13. AMANTADINE [Concomitant]
     Active Substance: AMANTADINE
     Dosage: UNK
  14. OMEPRAZOLE. [Concomitant]
     Active Substance: OMEPRAZOLE
     Dosage: UNK
  15. VENLAFAXINE [Concomitant]
     Active Substance: VENLAFAXINE HYDROCHLORIDE
     Dosage: UNK
  16. NAMENDA [Concomitant]
     Active Substance: MEMANTINE HYDROCHLORIDE
     Dosage: UNK
  17. SPIRONOLACTONE. [Concomitant]
     Active Substance: SPIRONOLACTONE
  18. DIAZEPAM. [Concomitant]
     Active Substance: DIAZEPAM
     Dosage: UNK
  19. PRAVASTATIN [Concomitant]
     Active Substance: PRAVASTATIN\PRAVASTATIN SODIUM
     Dosage: UNK
  20. DULCOLAX (DOCUSATE SODIUM) [Concomitant]
     Active Substance: DOCUSATE SODIUM
     Dosage: UNK UNK, PRN
  21. MIRABEGRON [Concomitant]
     Active Substance: MIRABEGRON
     Dosage: UNK
  22. GABAPENTIN. [Concomitant]
     Active Substance: GABAPENTIN
     Dosage: UNK
  23. NASONEX [Concomitant]
     Active Substance: MOMETASONE FUROATE
     Dosage: UNK
  24. OXYCODONE [Concomitant]
     Active Substance: OXYCODONE
     Dosage: UNK
     Dates: start: 201512
  25. PROMETHAZINE [Concomitant]
     Active Substance: PROMETHAZINE\PROMETHAZINE HYDROCHLORIDE
     Dosage: UNK
  26. LISINOPRIL. [Concomitant]
     Active Substance: LISINOPRIL
     Dosage: UNK
  27. FIORICET [Concomitant]
     Active Substance: ACETAMINOPHEN\BUTALBITAL\CAFFEINE
     Dosage: UNK
     Dates: end: 201512
  28. ALENDRONATE SODIUM. [Concomitant]
     Active Substance: ALENDRONATE SODIUM
     Dosage: UNK

REACTIONS (1)
  - Injection site pain [Recovered/Resolved]

NARRATIVE: CASE EVENT DATE: 1991
